FAERS Safety Report 13289789 (Version 1)
Quarter: 2017Q1

REPORT INFORMATION
  Report Type: Report from Study
  Country: DE (occurrence: DE)
  Receive Date: 20170302
  Receipt Date: 20170302
  Transmission Date: 20170428
  Serious: Yes (Other)
  Sender: FDA-Public Use
  Company Number: DE-BIOGEN-2017BI00364053

PATIENT
  Age: 48 Year
  Sex: Female

DRUGS (1)
  1. PLEGRIDY [Suspect]
     Active Substance: PEGINTERFERON BETA-1A
     Indication: MULTIPLE SCLEROSIS
     Route: 058
     Dates: start: 20150105

REACTIONS (2)
  - Uterine leiomyoma [Not Recovered/Not Resolved]
  - Endometrial hypertrophy [Not Recovered/Not Resolved]

NARRATIVE: CASE EVENT DATE: 201702
